FAERS Safety Report 8132920-9 (Version None)
Quarter: 2012Q1

REPORT INFORMATION
  Report Type: 
  Country: None (occurrence: None)
  Receive Date: 20120207
  Receipt Date: 20120127
  Transmission Date: 20120608
  Serious: Yes (Hospitalization)
  Sender: FDA-Public Use
  Company Number: LTI2012A00031

PATIENT
  Age: 61 Year
  Sex: Male

DRUGS (11)
  1. HYPERIUM (RILMENIDINE) [Concomitant]
  2. METOPROLOL TARTRATE [Concomitant]
  3. NITROGLYCERIN SPRAY [Concomitant]
  4. OMEPRAZOLE [Concomitant]
  5. CRESTOR [Concomitant]
  6. PIOGLITAZONE HYDROCHLORIDE/METFORMIN HYDROCHLORIDE [Suspect]
     Indication: TYPE 2 DIABETES MELLITUS
     Dosage: 3 TAB. (1 TAB.,3 IN 1 D) ORAL
     Route: 048
     Dates: start: 20090601, end: 20110601
  7. TRIATEC (CODEINE PHOSPHATE, PARACETAMOL) [Concomitant]
  8. ADANCOR (NICORANDIL) [Concomitant]
  9. INDAPAMIDE [Concomitant]
  10. PLAVIX [Concomitant]
  11. VASTAREL (TRIMETAZIDINE HYDROCHLORIDE) [Concomitant]

REACTIONS (2)
  - BLADDER TRANSITIONAL CELL CARCINOMA RECURRENT [None]
  - HAEMATURIA [None]
